FAERS Safety Report 9996194 (Version 1)
Quarter: 2014Q1

REPORT INFORMATION
  Report Type: Spontaneous
  Country: US (occurrence: None)
  Receive Date: 20140310
  Receipt Date: 20140310
  Transmission Date: 20141002
  Serious: No
  Sender: FDA-Public Use
  Company Number: None

PATIENT
  Age: 42 Year
  Sex: Female
  Weight: 61.24 kg

DRUGS (1)
  1. CYMBALTA [Suspect]

REACTIONS (7)
  - Nightmare [None]
  - Hypoaesthesia [None]
  - Paraesthesia [None]
  - Hyperhidrosis [None]
  - Nausea [None]
  - Feeling cold [None]
  - Pain [None]
